FAERS Safety Report 7686890-8 (Version None)
Quarter: 2011Q3

REPORT INFORMATION
  Report Type: 
  Country: None (occurrence: None)
  Receive Date: 20110816
  Receipt Date: 20110804
  Transmission Date: 20111222
  Serious: Yes (Hospitalization)
  Sender: FDA-Public Use
  Company Number: US-ELI_LILLY_AND_COMPANY-US201108002567

PATIENT
  Sex: Female

DRUGS (5)
  1. MULTI-VITAMIN [Concomitant]
  2. ARICEPT [Concomitant]
     Indication: MEMORY IMPAIRMENT
  3. FISH OIL [Concomitant]
  4. FORTEO [Suspect]
     Indication: OSTEOPOROSIS
     Dosage: 20 UG, QD
     Dates: start: 20100101
  5. CALCIUM CARBONATE [Concomitant]

REACTIONS (5)
  - MUSCLE STRAIN [None]
  - DIZZINESS [None]
  - CONTUSION [None]
  - FALL [None]
  - PAIN [None]
